FAERS Safety Report 23234773 (Version 1)
Quarter: 2023Q4

REPORT INFORMATION
  Report Type: Spontaneous
  Country: IT (occurrence: IT)
  Receive Date: 20231128
  Receipt Date: 20231128
  Transmission Date: 20240109
  Serious: Yes (Death, Hospitalization, Other)
  Sender: FDA-Public Use
  Company Number: IT-SA-2023SA366405

PATIENT
  Age: 73 Year

DRUGS (5)
  1. ENOXAPARIN SODIUM [Suspect]
     Active Substance: ENOXAPARIN SODIUM
     Indication: Anticoagulant therapy
     Dosage: 6000 IU, QD
     Dates: start: 20150626, end: 20150626
  2. ENOXAPARIN SODIUM [Suspect]
     Active Substance: ENOXAPARIN SODIUM
     Dosage: 6000 IU, BID
     Dates: start: 20150627, end: 20150627
  3. ENOXAPARIN SODIUM [Suspect]
     Active Substance: ENOXAPARIN SODIUM
     Dosage: 6000 IU, QD
     Dates: start: 20150630, end: 20150630
  4. WARFARIN SODIUM [Suspect]
     Active Substance: WARFARIN SODIUM
     Indication: Anticoagulant therapy
     Dosage: 0.5 DF, QD (1/2 TABLET)
     Dates: start: 20150623
  5. EMAGEL [Concomitant]
     Dosage: 500 ML, DURING THE PROCEDURE
     Dates: start: 20150630, end: 20150630

REACTIONS (6)
  - Post procedural haemorrhage [Fatal]
  - Overdose [Fatal]
  - Medical device site haemorrhage [Fatal]
  - Bronchial haemorrhage [Fatal]
  - Shock [Fatal]
  - Anuria [Fatal]

NARRATIVE: CASE EVENT DATE: 20150630
